FAERS Safety Report 6739721-4 (Version None)
Quarter: 2010Q2

REPORT INFORMATION
  Report Type: 
  Country: None (occurrence: None)
  Receive Date: 20100525
  Receipt Date: 20100520
  Transmission Date: 20101027
  Serious: Yes (Death)
  Sender: FDA-Public Use
  Company Number: CH-ROCHE-704422

PATIENT
  Age: 87 Year
  Sex: Male
  Weight: 72 kg

DRUGS (1)
  1. METHOXY POLYETHYLENE GLYCOL-EPOETIN BETA [Suspect]
     Indication: DRUG USE FOR UNKNOWN INDICATION
     Route: 065

REACTIONS (3)
  - BLOOD CREATININE INCREASED [None]
  - DEATH [None]
  - HAEMOGLOBIN DECREASED [None]
